FAERS Safety Report 7570389-3 (Version None)
Quarter: 2011Q2

REPORT INFORMATION
  Report Type: 
  Country: None (occurrence: None)
  Receive Date: 20110622
  Receipt Date: 20110622
  Transmission Date: 20111010
  Serious: Yes (Hospitalization)
  Sender: FDA-Public Use
  Company Number: None

PATIENT
  Age: 30 Year
  Sex: Female
  Weight: 56.6996 kg

DRUGS (1)
  1. DROSPIRENONE AND ETHINYL ESTRADIOL [Suspect]
     Indication: CONTRACEPTION
     Dosage: 1 TABLET ONCE DAILY PO
     Route: 048
     Dates: start: 20101101, end: 20110617

REACTIONS (3)
  - VAGINAL HAEMORRHAGE [None]
  - PRODUCT SUBSTITUTION ISSUE [None]
  - ADNEXA UTERI PAIN [None]
